FAERS Safety Report 20115684 (Version 1)
Quarter: 2021Q4

REPORT INFORMATION
  Report Type: Report from Study
  Country: CA (occurrence: CA)
  Receive Date: 20211126
  Receipt Date: 20211126
  Transmission Date: 20220303
  Serious: Yes (Hospitalization, Other)
  Sender: FDA-Public Use
  Company Number: CA-ABBVIE-21K-028-4174851-00

PATIENT
  Sex: Female

DRUGS (3)
  1. HUMIRA [Suspect]
     Active Substance: ADALIMUMAB
     Indication: Rheumatoid arthritis
     Route: 058
     Dates: start: 20080221
  2. HUMIRA [Suspect]
     Active Substance: ADALIMUMAB
     Route: 058
  3. METHOTREXATE [Concomitant]
     Active Substance: METHOTREXATE
     Indication: Product used for unknown indication

REACTIONS (11)
  - Illness [Unknown]
  - Cardiac pacemaker insertion [Unknown]
  - Feeling cold [Unknown]
  - Chills [Not Recovered/Not Resolved]
  - Peripheral coldness [Unknown]
  - Pain in extremity [Recovering/Resolving]
  - Blood sodium decreased [Unknown]
  - Blood potassium decreased [Unknown]
  - Musculoskeletal stiffness [Unknown]
  - Muscle spasms [Recovered/Resolved]
  - Arthralgia [Recovering/Resolving]

NARRATIVE: CASE EVENT DATE: 20210101
